FAERS Safety Report 25255064 (Version 1)
Quarter: 2025Q2

REPORT INFORMATION
  Report Type: Spontaneous
  Country: US (occurrence: US)
  Receive Date: 20250430
  Receipt Date: 20250430
  Transmission Date: 20250716
  Serious: Yes (Hospitalization, Other)
  Sender: AJANTA PHARMA USA INC
  Company Number: US-AJANTA-2025AJA00054

PATIENT
  Age: 61 Year
  Sex: Female
  Weight: 120 kg

DRUGS (4)
  1. VENLAFAXINE [Suspect]
     Active Substance: VENLAFAXINE HYDROCHLORIDE
     Indication: Mental disorder
     Route: 048
     Dates: end: 2025
  2. VENLAFAXINE [Suspect]
     Active Substance: VENLAFAXINE HYDROCHLORIDE
     Route: 048
     Dates: start: 20250213, end: 20250313
  3. TRAMADOL [Concomitant]
     Active Substance: TRAMADOL
     Indication: Arthritis
  4. TYLENOL [Concomitant]
     Active Substance: ACETAMINOPHEN

REACTIONS (5)
  - Mental impairment [Unknown]
  - Drug ineffective [Unknown]
  - Incorrect dose administered by product [Unknown]
  - Product solubility abnormal [Unknown]
  - Product residue present [Unknown]

NARRATIVE: CASE EVENT DATE: 20250101
